FAERS Safety Report 25985626 (Version 1)
Quarter: 2025Q4

REPORT INFORMATION
  Report Type: Spontaneous
  Country: EU (occurrence: EU)
  Receive Date: 20251101
  Receipt Date: 20251101
  Transmission Date: 20260118
  Serious: Yes (Hospitalization, Other)
  Sender: AUROBINDO
  Company Number: EU-ABBVIE-6507792

PATIENT
  Sex: Male

DRUGS (2)
  1. RIVASTIGMINE [Suspect]
     Active Substance: RIVASTIGMINE
     Indication: Product used for unknown indication
     Dosage: PATCH
     Route: 065
  2. FOSCARBIDOPA\FOSLEVODOPA [Suspect]
     Active Substance: FOSCARBIDOPA\FOSLEVODOPA
     Indication: Parkinson^s disease
     Dosage: CR: 0.39 ML/H, CRH:0.41 ML/H, CRN: 0.22 ML/H, ED: 0.20 ML.
     Route: 058
     Dates: start: 20240903

REACTIONS (5)
  - Hospitalisation [Unknown]
  - Hallucination [Unknown]
  - Cognitive disorder [Unknown]
  - Gait inability [Unknown]
  - Infusion site abscess [Recovering/Resolving]
